FAERS Safety Report 8315597-9 (Version None)
Quarter: 2012Q2

REPORT INFORMATION
  Report Type: 
  Country: None (occurrence: None)
  Receive Date: 20120426
  Receipt Date: 20120423
  Transmission Date: 20120825
  Serious: Yes (Other)
  Sender: FDA-Public Use
  Company Number: FR-ROCHE-477276

PATIENT
  Sex: Male
  Weight: 89 kg

DRUGS (23)
  1. ACTEMRA [Suspect]
     Indication: RHEUMATOID ARTHRITIS
     Dosage: FORM: INFUSION.
     Route: 042
     Dates: start: 20051221, end: 20070704
  2. RAMIPRIL [Concomitant]
  3. OROCAL D3 [Concomitant]
  4. BISOPROLOL FUMARATE [Concomitant]
  5. FOLIC ACID [Concomitant]
  6. FUROSEMIDE [Concomitant]
  7. PRAVASTATIN [Concomitant]
  8. ACETYLCYSTEINE [Concomitant]
  9. ALENDRONIC ACID [Concomitant]
  10. AZITHROMYCIN [Concomitant]
     Dates: start: 20070629, end: 20070703
  11. BAMBUTEROL [Concomitant]
  12. FLUINDIONE [Concomitant]
  13. ACTEMRA [Suspect]
     Route: 042
  14. ACTEMRA [Suspect]
     Indication: RHEUMATOID ARTHRITIS
     Dosage: DOSE BLINDED. TAKEN IN A PREVIOUS CORE STUDY WA18062, WA18063 OR WA17824.
     Route: 042
  15. METHOTREXATE [Concomitant]
  16. GLICLAZIDE [Concomitant]
  17. SYMBICORT [Concomitant]
  18. ASPIRIN [Concomitant]
  19. NITROGLYCERIN [Concomitant]
  20. PANTOPRAZOLE [Concomitant]
  21. TIOTROPIUM BROMIDE [Concomitant]
  22. TAMSULOSIN HCL [Concomitant]
  23. ACETAMINOPHEN [Concomitant]

REACTIONS (2)
  - PNEUMOCOCCAL INFECTION [None]
  - BRONCHOPNEUMOPATHY [None]
